FAERS Safety Report 8422065-2 (Version None)
Quarter: 2012Q2

REPORT INFORMATION
  Report Type: 
  Country: None (occurrence: None)
  Receive Date: 20120608
  Receipt Date: 20120601
  Transmission Date: 20120825
  Serious: Yes (Other)
  Sender: FDA-Public Use
  Company Number: GB-ROCHE-1067229

PATIENT
  Sex: Female
  Weight: 65.8 kg

DRUGS (2)
  1. MABTHERA [Suspect]
     Indication: PRODUCT USED FOR UNKNOWN INDICATION
     Dates: start: 20080219
  2. STEROIDS NOS [Concomitant]

REACTIONS (3)
  - BREAST CANCER [None]
  - LYMPHADENECTOMY [None]
  - MASTOIDECTOMY [None]
